FAERS Safety Report 12837576 (Version 2)
Quarter: 2016Q4

REPORT INFORMATION
  Report Type: Spontaneous
  Country: US (occurrence: US)
  Receive Date: 20161012
  Receipt Date: 20161216
  Transmission Date: 20170207
  Serious: Yes (Other)
  Sender: FDA-Public Use
  Company Number: US-RELYPSA-RLY2016002894

PATIENT
  Age: 63 Year
  Sex: Male

DRUGS (10)
  1. TRAMADOL. [Concomitant]
     Active Substance: TRAMADOL
  2. RENAPLEX D [Concomitant]
  3. NEXIUM [Concomitant]
     Active Substance: ESOMEPRAZOLE MAGNESIUM
  4. CARVEDILOL. [Concomitant]
     Active Substance: CARVEDILOL
  5. CLONIDINE. [Concomitant]
     Active Substance: CLONIDINE
  6. CALCIUM [Concomitant]
     Active Substance: CALCIUM
  7. VELTASSA [Suspect]
     Active Substance: PATIROMER
     Indication: HYPERKALAEMIA
     Dosage: 8.4 G, QD
     Route: 048
     Dates: start: 20160609
  8. PROCARDIA [Concomitant]
     Active Substance: NIFEDIPINE
  9. INSULIN [Concomitant]
     Active Substance: INSULIN NOS
  10. NIFEDICAL XL [Concomitant]
     Active Substance: NIFEDIPINE

REACTIONS (1)
  - Haematochezia [Recovered/Resolved]

NARRATIVE: CASE EVENT DATE: 201606
